FAERS Safety Report 18950053 (Version 3)
Quarter: 2021Q2

REPORT INFORMATION
  Report Type: Spontaneous
  Country: US (occurrence: US)
  Receive Date: 20210228
  Receipt Date: 20210428
  Transmission Date: 20210717
  Serious: No
  Sender: FDA-Public Use
  Company Number: US-JNJFOC-20210226901

PATIENT
  Sex: Female

DRUGS (1)
  1. ZYRTEC?D [Suspect]
     Active Substance: CETIRIZINE HYDROCHLORIDE\PSEUDOEPHEDRINE HYDROCHLORIDE
     Indication: MULTIPLE ALLERGIES
     Dosage: 5MG CETIRIZINE HCL AND 120 MG PSEUDOEPHEDRINE 120 MG?1 TABLET A DAY OR 2X EVERY 12 HOURS
     Route: 048

REACTIONS (3)
  - Product package associated injury [Unknown]
  - Overdose [Unknown]
  - Product packaging issue [Unknown]
